APPROVED DRUG PRODUCT: GEMTESA
Active Ingredient: VIBEGRON
Strength: 75MG
Dosage Form/Route: TABLET;ORAL
Application: N213006 | Product #001
Applicant: SUMITOMO PHARMA AMERICA INC
Approved: Dec 23, 2020 | RLD: Yes | RS: Yes | Type: RX

PATENTS:
Patent 12102638 | Expires: Mar 22, 2040
Patent 8247415 | Expires: Dec 23, 2034
Patent 12357636 | Expires: Jul 6, 2042
Patent 8247415 | Expires: Dec 23, 2034
Patent 8653260 | Expires: Apr 2, 2029
Patent 12180219 | Expires: Mar 12, 2034

EXCLUSIVITY:
Code: I-955 | Date: Dec 18, 2027